FAERS Safety Report 12984686 (Version 7)
Quarter: 2018Q3

REPORT INFORMATION
  Report Type: Report from Study
  Country: None (occurrence: NL)
  Receive Date: 20161129
  Receipt Date: 20180801
  Transmission Date: 20181010
  Serious: Yes (Hospitalization)
  Sender: FDA-Public Use
  Company Number: NL-ABBVIE-16P-114-1593618-00

PATIENT
  Sex: Female

DRUGS (4)
  1. DUODOPA [Suspect]
     Active Substance: CARBIDOPA\LEVODOPA
     Indication: PARKINSON^S DISEASE
     Dosage: MORNING DOSE: 3.5; CONTINUOUS DOSE 2.7; EXTRA DOSE 0.8; NIGHT DOSE2.0
     Route: 050
  2. DUODOPA [Suspect]
     Active Substance: CARBIDOPA\LEVODOPA
     Dosage: CONTINUOUS DOSE IS SET ON 1.8ML INSTEAD OF 4.1ML.
     Route: 050
  3. DIAZEPAM. [Concomitant]
     Active Substance: DIAZEPAM
     Indication: PRODUCT USED FOR UNKNOWN INDICATION
  4. METAMUCIL [Concomitant]
     Active Substance: PLANTAGO SEED
     Indication: PRODUCT USED FOR UNKNOWN INDICATION

REACTIONS (24)
  - Decreased appetite [Not Recovered/Not Resolved]
  - Pain in extremity [Recovered/Resolved]
  - Gait inability [Recovering/Resolving]
  - Joint range of motion decreased [Not Recovered/Not Resolved]
  - Feeling abnormal [Unknown]
  - Tremor [Unknown]
  - Muscle rigidity [Not Recovered/Not Resolved]
  - Back pain [Recovered/Resolved]
  - Memory impairment [Not Recovered/Not Resolved]
  - Muscle spasms [Not Recovered/Not Resolved]
  - Muscular weakness [Not Recovered/Not Resolved]
  - Malaise [Not Recovered/Not Resolved]
  - Dyskinesia [Not Recovered/Not Resolved]
  - Freezing phenomenon [Not Recovered/Not Resolved]
  - Off label use [Not Recovered/Not Resolved]
  - Urinary tract infection [Not Recovered/Not Resolved]
  - Speech disorder [Unknown]
  - Underdose [Recovered/Resolved]
  - Parkinson^s disease [Not Recovered/Not Resolved]
  - On and off phenomenon [Not Recovered/Not Resolved]
  - Back pain [Unknown]
  - Mental disorder [Not Recovered/Not Resolved]
  - Insomnia [Unknown]
  - Drug effect incomplete [Recovered/Resolved]

NARRATIVE: CASE EVENT DATE: 20180725
